FAERS Safety Report 11811699 (Version 1)
Quarter: 2015Q4

REPORT INFORMATION
  Report Type: Spontaneous
  Country: FR (occurrence: FR)
  Receive Date: 20151208
  Receipt Date: 20151208
  Transmission Date: 20160305
  Serious: Yes (Hospitalization)
  Sender: FDA-Public Use
  Company Number: FR-JNJFOC-20151204431

PATIENT
  Sex: Male

DRUGS (4)
  1. SURGAM [Suspect]
     Active Substance: TIAPROFENIC ACID
     Indication: EAR INFECTION
     Route: 048
     Dates: start: 20150904, end: 20150909
  2. IXPRIM [Suspect]
     Active Substance: ACETAMINOPHEN\TRAMADOL HYDROCHLORIDE
     Indication: PRODUCT USED FOR UNKNOWN INDICATION
     Route: 048
     Dates: start: 20150904, end: 20150909
  3. PYOSTACINE [Suspect]
     Active Substance: PRISTINAMYCIN
     Indication: EAR INFECTION
     Route: 048
     Dates: start: 20150904, end: 20150909
  4. CIPROFLOXACIN W/DEXAMETHASONE [Suspect]
     Active Substance: CIPROFLOXACIN\DEXAMETHASONE
     Indication: EAR INFECTION
     Route: 001
     Dates: start: 20150904, end: 20150909

REACTIONS (16)
  - Blood parathyroid hormone increased [None]
  - Oral herpes [None]
  - Anaemia [None]
  - Blood pH decreased [None]
  - Left ventricular hypertrophy [None]
  - Haemodialysis [None]
  - Granulomatosis with polyangiitis [None]
  - Hyperkalaemia [None]
  - Acute kidney injury [Unknown]
  - Blood pressure systolic increased [None]
  - Glomerulonephritis [None]
  - Paraesthesia [None]
  - Chronic kidney disease [None]
  - Nephropathy [None]
  - Vasculitis necrotising [None]
  - Epistaxis [None]
